FAERS Safety Report 21677792 (Version 5)
Quarter: 2025Q3

REPORT INFORMATION
  Report Type: Spontaneous
  Country: EU (occurrence: EU)
  Receive Date: 20221203
  Receipt Date: 20250812
  Transmission Date: 20251020
  Serious: Yes (Hospitalization, Other)
  Sender: AUROBINDO
  Company Number: EU-SA-2022SA472584

PATIENT
  Age: 85 Year
  Sex: Female

DRUGS (8)
  1. LEVOFLOXACIN [Suspect]
     Active Substance: LEVOFLOXACIN
     Indication: Antibiotic therapy
     Route: 065
  2. CEFTRIAXONE [Suspect]
     Active Substance: CEFTRIAXONE
     Indication: Antibiotic therapy
     Route: 065
  3. VALPROATE [Suspect]
     Active Substance: VALPROIC ACID
     Indication: Epilepsy
     Dosage: 300 MILLIGRAM, ONCE A DAY
     Route: 065
  4. VALPROATE [Suspect]
     Active Substance: VALPROIC ACID
     Dosage: 1500 MILLIGRAM, ONCE A DAY
     Route: 065
  5. VALPROATE [Suspect]
     Active Substance: VALPROIC ACID
     Dosage: 800 MILLIGRAM, ONCE A DAY
     Route: 065
  6. DEXAMETHASONE [Suspect]
     Active Substance: DEXAMETHASONE
     Indication: COVID-19 pneumonia
     Route: 065
  7. REMDESIVIR [Suspect]
     Active Substance: REMDESIVIR
     Indication: Antibiotic therapy
     Route: 065
  8. DIAZEPAM [Suspect]
     Active Substance: DIAZEPAM
     Indication: Status epilepticus
     Route: 042

REACTIONS (8)
  - Altered state of consciousness [Recovered/Resolved]
  - Encephalomalacia [Recovered/Resolved]
  - Status epilepticus [Recovered/Resolved]
  - Unresponsive to stimuli [Recovered/Resolved]
  - White matter lesion [Recovered/Resolved]
  - Somnolence [Recovered/Resolved]
  - Anticonvulsant drug level below therapeutic [Recovered/Resolved]
  - Product use issue [Unknown]
